FAERS Safety Report 20929263 (Version 2)
Quarter: 2022Q2

REPORT INFORMATION
  Report Type: Spontaneous
  Country: IT (occurrence: IT)
  Receive Date: 20220608
  Receipt Date: 20220610
  Transmission Date: 20220721
  Serious: Yes (Congenital Anomaly, Other)
  Sender: FDA-Public Use
  Company Number: IT-NOVARTISPH-NVSC2022IT128436

PATIENT
  Sex: Female
  Weight: 3.1 kg

DRUGS (5)
  1. NEVIRAPINE [Suspect]
     Active Substance: NEVIRAPINE
     Indication: Foetal exposure during pregnancy
     Dosage: MATERNAL EXPOSURE DURING PREGNANCY: UNKNOWN
     Route: 064
  2. TENOFOVIR DISOPROXIL FUMARATE [Suspect]
     Active Substance: TENOFOVIR DISOPROXIL FUMARATE
     Indication: Foetal exposure during pregnancy
     Dosage: UNK
     Route: 064
  3. RALTEGRAVIR [Suspect]
     Active Substance: RALTEGRAVIR
     Indication: Foetal exposure during pregnancy
     Dosage: UNK
     Route: 064
  4. LAMIVUDINE [Suspect]
     Active Substance: LAMIVUDINE
     Indication: Foetal exposure during pregnancy
     Dosage: MATERNAL EXPOSURE DURING PREGNANCY: UNKNOWN
     Route: 064
  5. ZIDOVUDINE [Suspect]
     Active Substance: ZIDOVUDINE
     Indication: Foetal exposure during pregnancy
     Dosage: MATERNAL EXPOSURE DURING PREGNANCY: UNKNOWN
     Route: 064

REACTIONS (6)
  - Dextrocardia [Recovered/Resolved]
  - Thymus enlargement [Recovered/Resolved]
  - Mediastinal shift [Recovered/Resolved]
  - Lung disorder [Recovered/Resolved]
  - Toxicity to various agents [Unknown]
  - Foetal exposure during pregnancy [Unknown]
